FAERS Safety Report 19974269 (Version 1)
Quarter: 2021Q4

REPORT INFORMATION
  Report Type: Spontaneous
  Country: TH (occurrence: TH)
  Receive Date: 20211020
  Receipt Date: 20211020
  Transmission Date: 20220303
  Serious: Yes (Other)
  Sender: FDA-Public Use
  Company Number: TH-BOEHRINGERINGELHEIM-2021-BI-131744

PATIENT
  Age: 32 Year
  Sex: Male
  Weight: 122 kg

DRUGS (1)
  1. ALTEPLASE [Suspect]
     Active Substance: ALTEPLASE
     Indication: Ischaemic stroke
     Route: 042

REACTIONS (3)
  - Somnolence [Recovering/Resolving]
  - Thrombosis [Recovering/Resolving]
  - Headache [Not Recovered/Not Resolved]
